FAERS Safety Report 22130631 (Version 1)
Quarter: 2023Q1

REPORT INFORMATION
  Report Type: Spontaneous
  Country: US (occurrence: US)
  Receive Date: 20230323
  Receipt Date: 20230323
  Transmission Date: 20230417
  Serious: No
  Sender: FDA-Public Use
  Company Number: US-GLAXOSMITHKLINE-USCH2023012398

PATIENT
  Age: 44 Year
  Sex: Female

DRUGS (1)
  1. ALLI [Suspect]
     Active Substance: ORLISTAT
     Indication: Medical diet
     Dosage: UNK
     Dates: start: 20230223, end: 20230317

REACTIONS (5)
  - Diarrhoea [Recovered/Resolved]
  - Steatorrhoea [Recovered/Resolved]
  - Flatulence [Recovered/Resolved]
  - Abdominal distension [Recovered/Resolved]
  - Drug ineffective [Recovered/Resolved]
